FAERS Safety Report 14101187 (Version 1)
Quarter: 2017Q4

REPORT INFORMATION
  Report Type: Spontaneous
  Country: US (occurrence: None)
  Receive Date: 20171017
  Receipt Date: 20171017
  Transmission Date: 20180321
  Serious: Yes (Death)
  Sender: FDA-Public Use
  Company Number: None

PATIENT
  Age: 59 Year
  Sex: Female

DRUGS (1)
  1. ENOXAPARI N [Suspect]
     Active Substance: ENOXAPARIN

REACTIONS (1)
  - Death [None]

NARRATIVE: CASE EVENT DATE: 20171006
